FAERS Safety Report 9683486 (Version 1)
Quarter: 2013Q4

REPORT INFORMATION
  Report Type: Spontaneous
  Country: DE (occurrence: DE)
  Receive Date: 20131112
  Receipt Date: 20131112
  Transmission Date: 20140711
  Serious: Yes (Hospitalization)
  Sender: FDA-Public Use
  Company Number: DE-ABBVIE-13P-062-1168185-00

PATIENT
  Age: 48 Year
  Sex: Female

DRUGS (4)
  1. ERGENYL [Suspect]
     Indication: PRODUCT USED FOR UNKNOWN INDICATION
     Dosage: 650 MG DAILY
     Route: 048
     Dates: start: 20110117, end: 20130802
  2. ERGENYL [Suspect]
     Dosage: 400 MG DAILY
     Route: 048
     Dates: start: 20130803, end: 20130807
  3. ERGENYL [Suspect]
     Dosage: 250 MG DAILY
     Route: 048
     Dates: start: 20130808
  4. CLOZAPINE [Concomitant]
     Indication: PRODUCT USED FOR UNKNOWN INDICATION
     Dates: start: 20130117

REACTIONS (1)
  - Hirsutism [Not Recovered/Not Resolved]
